FAERS Safety Report 23715156 (Version 2)
Quarter: 2024Q2

REPORT INFORMATION
  Report Type: Spontaneous
  Country: US (occurrence: US)
  Receive Date: 20240407
  Receipt Date: 20240521
  Transmission Date: 20240717
  Serious: No
  Sender: FDA-Public Use
  Company Number: US-SA-SAC20240403000654

PATIENT
  Age: 62 Year
  Sex: Male

DRUGS (6)
  1. ALPROLIX [Suspect]
     Active Substance: EFTRENONACOG ALFA
     Indication: Factor IX deficiency
     Dosage: 4320 U, QW
     Route: 042
     Dates: start: 201509
  2. ALPROLIX [Suspect]
     Active Substance: EFTRENONACOG ALFA
     Indication: Factor IX deficiency
     Dosage: 4320 U, QW
     Route: 042
     Dates: start: 201509
  3. ALPROLIX [Suspect]
     Active Substance: EFTRENONACOG ALFA
     Dosage: 4320 U, PRN
     Route: 042
     Dates: start: 201509
  4. ALPROLIX [Suspect]
     Active Substance: EFTRENONACOG ALFA
     Dosage: 4320 U, PRN
     Route: 042
     Dates: start: 201509
  5. ALPROLIX [Suspect]
     Active Substance: EFTRENONACOG ALFA
     Dosage: 8640 U, QOD
     Route: 042
     Dates: start: 201509
  6. ALPROLIX [Suspect]
     Active Substance: EFTRENONACOG ALFA
     Dosage: 8640 U, QOD
     Route: 042
     Dates: start: 201509

REACTIONS (2)
  - Poor venous access [Unknown]
  - Limb discomfort [Unknown]
